FAERS Safety Report 21369995 (Version 2)
Quarter: 2022Q4

REPORT INFORMATION
  Report Type: Spontaneous
  Country: DE (occurrence: DE)
  Receive Date: 20220923
  Receipt Date: 20221006
  Transmission Date: 20230113
  Serious: Yes (Other)
  Sender: FDA-Public Use
  Company Number: None

PATIENT
  Age: 34 Year
  Sex: Female
  Weight: 63 kg

DRUGS (2)
  1. FEXOFENADINE HYDROCHLORIDE [Suspect]
     Active Substance: FEXOFENADINE HYDROCHLORIDE
     Indication: Fatigue
     Dosage: 120 MG, QD
     Route: 048
     Dates: start: 20220818, end: 20220910
  2. FEXOFENADINE HYDROCHLORIDE [Suspect]
     Active Substance: FEXOFENADINE HYDROCHLORIDE
     Indication: COVID-19 treatment

REACTIONS (8)
  - Suicidal ideation [Recovered/Resolved]
  - Crying [Unknown]
  - Discouragement [Unknown]
  - Irritability [Recovered/Resolved]
  - Disturbance in attention [Not Recovered/Not Resolved]
  - Depression [Recovered/Resolved]
  - Initial insomnia [Not Recovered/Not Resolved]
  - Crying [Unknown]

NARRATIVE: CASE EVENT DATE: 20220801
